FAERS Safety Report 9279038 (Version 1)
Quarter: 2012Q4

REPORT INFORMATION
  Report Type: Spontaneous
  Country: FR (occurrence: None)
  Receive Date: 20121127
  Receipt Date: 20121127
  Transmission Date: 20130627
  Serious: Yes (Hospitalization)
  Sender: FDA-Public Use
  Company Number: GAM-234-12-FR

PATIENT
  Age: 68 Year
  Sex: Male

DRUGS (12)
  1. OCTAGAM [Suspect]
     Dosage: (1x 1/Month)
     Dates: start: 20120903, end: 20120907
  2. OCTAGAM [Suspect]
  3. PREDNISONE [Concomitant]
  4. POTASSIUM CHLORIDE [Concomitant]
  5. COLECALCIFEROL [Concomitant]
  6. DL LYSINE ACETYLCALICYLATE [Concomitant]
  7. CARVEDILOL [Concomitant]
  8. RAMIPRIL [Concomitant]
  9. EZETIMIBE [Concomitant]
  10. LERCANIDIPINE [Concomitant]
  11. OMEPRAZOLE [Concomitant]
  12. VITAMIN D3 [Concomitant]

REACTIONS (3)
  - Pulmonary embolism [None]
  - Phlebitis [None]
  - Deep vein thrombosis [None]
